FAERS Safety Report 5699770-4 (Version None)
Quarter: 2008Q2

REPORT INFORMATION
  Report Type: 
  Country: None (occurrence: None)
  Receive Date: 20080410
  Receipt Date: 20080410
  Transmission Date: 20081010
  Serious: Yes (Hospitalization)
  Sender: FDA-Public Use
  Company Number: None

PATIENT
  Age: 2 Year
  Sex: Female
  Weight: 14.5151 kg

DRUGS (1)
  1. HEPARIN [Suspect]
     Dosage: 100 OR 10; 1 - 3 TIMES PER WK SQ
     Route: 058
     Dates: start: 20071130, end: 20080409

REACTIONS (4)
  - ABDOMINAL PAIN UPPER [None]
  - CONSTIPATION [None]
  - PYREXIA [None]
  - SLEEP DISORDER [None]
